FAERS Safety Report 7937416-2 (Version None)
Quarter: 2011Q4

REPORT INFORMATION
  Report Type: 
  Country: None (occurrence: None)
  Receive Date: 20111123
  Receipt Date: 20111115
  Transmission Date: 20120403
  Serious: Yes (Hospitalization)
  Sender: FDA-Public Use
  Company Number: CA-JNJFOC-20111107796

PATIENT
  Sex: Female
  Weight: 47.8 kg

DRUGS (6)
  1. REMICADE [Suspect]
     Route: 042
     Dates: start: 20110901
  2. REMICADE [Suspect]
     Route: 042
     Dates: start: 20111001
  3. PREDNISONE TAB [Concomitant]
     Route: 048
  4. REMICADE [Suspect]
     Indication: PSORIASIS
     Route: 042
     Dates: start: 20111001
  5. REMICADE [Suspect]
     Indication: CROHN'S DISEASE
     Route: 042
     Dates: start: 20110901
  6. DESOGESTREL AND ETHINYL ESTRADIOL [Concomitant]
     Route: 048

REACTIONS (2)
  - ARTHRALGIA [None]
  - PETECHIAE [None]
